FAERS Safety Report 15117002 (Version 1)
Quarter: 2018Q3

REPORT INFORMATION
  Report Type: Spontaneous
  Country: CA (occurrence: CA)
  Receive Date: 20180706
  Receipt Date: 20180706
  Transmission Date: 20181010
  Serious: Yes (Other)
  Sender: FDA-Public Use
  Company Number: CA-TEVA-2018-CA-919113

PATIENT
  Age: 28 Year
  Sex: Female

DRUGS (1)
  1. 5?AMINO SALICYLIC ACID (ASA) [Suspect]
     Active Substance: MESALAMINE
     Indication: COLITIS ULCERATIVE
     Route: 065

REACTIONS (2)
  - Condition aggravated [Unknown]
  - Colitis ulcerative [None]

NARRATIVE: CASE EVENT DATE: 201805
